FAERS Safety Report 12890367 (Version 2)
Quarter: 2016Q4

REPORT INFORMATION
  Report Type: Report from Study
  Country: US (occurrence: US)
  Receive Date: 20161027
  Receipt Date: 20161107
  Transmission Date: 20170207
  Serious: Yes (Hospitalization)
  Sender: FDA-Public Use
  Company Number: US-ACTELION-A-US2016-144276

PATIENT
  Age: 6 Month
  Sex: Female

DRUGS (4)
  1. TRACLEER [Suspect]
     Active Substance: BOSENTAN
     Indication: PREMATURE BABY
  2. TRACLEER [Suspect]
     Active Substance: BOSENTAN
     Indication: ATRIOVENTRICULAR SEPTAL DEFECT
  3. TRACLEER [Suspect]
     Active Substance: BOSENTAN
     Indication: CHRONIC LEFT VENTRICULAR FAILURE
     Dosage: 6.25 MG/ML, QD
     Route: 048
     Dates: start: 20160824
  4. TRACLEER [Suspect]
     Active Substance: BOSENTAN
     Indication: TRISOMY 21

REACTIONS (1)
  - Cardiac operation [Recovered/Resolved]
